FAERS Safety Report 10302263 (Version 1)
Quarter: 2014Q3

REPORT INFORMATION
  Report Type: Spontaneous
  Country: US (occurrence: US)
  Receive Date: 20140714
  Receipt Date: 20140714
  Transmission Date: 20150326
  Serious: No
  Sender: FDA-Public Use
  Company Number: US-BAUSCH-BL-2013-006121

PATIENT
  Age: 62 Year
  Sex: Female

DRUGS (2)
  1. BESIVANCE [Suspect]
     Active Substance: BESIFLOXACIN
     Dosage: ONE DROP INTO LEFT EYE TWICE DAILY
     Route: 047
     Dates: start: 20130201, end: 201302
  2. BESIVANCE [Suspect]
     Active Substance: BESIFLOXACIN
     Indication: CONJUNCTIVITIS
     Dosage: ONE DROP INTO RIGHT EYE TWICE DAILY
     Route: 047
     Dates: start: 20130201, end: 201302

REACTIONS (2)
  - Foreign body sensation in eyes [Not Recovered/Not Resolved]
  - Dry eye [Not Recovered/Not Resolved]

NARRATIVE: CASE EVENT DATE: 201302
